FAERS Safety Report 6534707-7 (Version None)
Quarter: 2009Q4

REPORT INFORMATION
  Report Type: 
  Country: None (occurrence: None)
  Receive Date: 20091228
  Receipt Date: 20091009
  Transmission Date: 20100525
  Serious: Yes (Life-Threatening)
  Sender: FDA-Public Use
  Company Number: US-003545

PATIENT
  Age: 74 Year
  Sex: Female

DRUGS (1)
  1. MULTIHANCE [Suspect]
     Indication: NUCLEAR MAGNETIC RESONANCE IMAGING
     Dosage: 8ML ONCE INTRAVENOUS
     Route: 042
     Dates: start: 20090922, end: 20090922

REACTIONS (1)
  - ANAPHYLACTIC SHOCK [None]
